FAERS Safety Report 12398728 (Version 6)
Quarter: 2018Q4

REPORT INFORMATION
  Report Type: Spontaneous
  Country: JP (occurrence: JP)
  Receive Date: 20160524
  Receipt Date: 20181015
  Transmission Date: 20190204
  Serious: Yes (Hospitalization)
  Sender: FDA-Public Use
  Company Number: JP-009507513-1605JPN010458

PATIENT
  Age: 97 Year
  Sex: Female

DRUGS (1)
  1. ALENDRONATE SODIUM. [Suspect]
     Active Substance: ALENDRONATE SODIUM
     Indication: OSTEOPOROSIS
     Dosage: 35 MILLIGRAM PER WEEK
     Route: 048

REACTIONS (3)
  - Periodontitis [Unknown]
  - Osteonecrosis of jaw [Recovering/Resolving]
  - Gas gangrene [Recovering/Resolving]

NARRATIVE: CASE EVENT DATE: 201510
